FAERS Safety Report 4468146-X (Version None)
Quarter: 2004Q4

REPORT INFORMATION
  Report Type: 
  Country: None (occurrence: None)
  Receive Date: 20041004
  Receipt Date: 20040927
  Transmission Date: 20050328
  Serious: Yes (Hospitalization)
  Sender: FDA-Public Use
  Company Number: STA-AE-04-032

PATIENT
  Age: 64 Year
  Sex: Male

DRUGS (1)
  1. ALPRAZOLAM [Suspect]
     Indication: GENERALISED ANXIETY DISORDER
     Dosage: 1 MG, Q PM

REACTIONS (9)
  - ABNORMAL BEHAVIOUR [None]
  - AMNESIA [None]
  - BLOOD CREATININE ABNORMAL [None]
  - BLOOD UREA ABNORMAL [None]
  - CEREBRAL ATROPHY [None]
  - DISTURBANCE IN ATTENTION [None]
  - DYSGRAPHIA [None]
  - ELECTROENCEPHALOGRAM ABNORMAL [None]
  - IMPAIRED SELF-CARE [None]
